FAERS Safety Report 8115092-6 (Version None)
Quarter: 2012Q1

REPORT INFORMATION
  Report Type: 
  Country: None (occurrence: None)
  Receive Date: 20120206
  Receipt Date: 20120125
  Transmission Date: 20120608
  Serious: Yes (Other)
  Sender: FDA-Public Use
  Company Number: FR-JNJFOC-20120113151

PATIENT
  Age: 26 Year
  Sex: Male

DRUGS (2)
  1. TRAMADOL HCL [Suspect]
     Indication: ROAD TRAFFIC ACCIDENT
     Route: 048
  2. TRAMADOL HCL [Suspect]
     Indication: LOWER LIMB FRACTURE
     Route: 048

REACTIONS (3)
  - WITHDRAWAL SYNDROME [None]
  - LOSS OF CONSCIOUSNESS [None]
  - DRUG DEPENDENCE [None]
